FAERS Safety Report 12827832 (Version 1)
Quarter: 2016Q4

REPORT INFORMATION
  Report Type: Spontaneous
  Country: BE (occurrence: BE)
  Receive Date: 20161007
  Receipt Date: 20161007
  Transmission Date: 20170207
  Serious: Yes (Other)
  Sender: FDA-Public Use
  Company Number: BE-TEVA-698721ROM

PATIENT
  Age: 36 Year
  Sex: Female

DRUGS (16)
  1. CISPLATINE TEVA [Suspect]
     Active Substance: CISPLATIN
     Indication: NEOPLASM
     Route: 042
     Dates: start: 20150813, end: 20160901
  2. PANTOMED [Concomitant]
     Active Substance: DEXPANTHENOL
     Dosage: 20 MILLIGRAM DAILY;
     Route: 048
  3. NOVABAN [Concomitant]
     Active Substance: TROPISETRON HYDROCHLORIDE
     Indication: PROPHYLAXIS OF NAUSEA AND VOMITING
     Route: 042
     Dates: start: 20160511, end: 20160901
  4. AACIDEXAM [Concomitant]
     Active Substance: DEXAMETHASONE
     Indication: PROPHYLAXIS OF NAUSEA AND VOMITING
     Route: 042
     Dates: start: 20160511, end: 20160901
  5. LASIX [Concomitant]
     Active Substance: FUROSEMIDE
     Indication: DIURETIC THERAPY
     Route: 042
     Dates: start: 20160511, end: 20160901
  6. OXYNORM [Concomitant]
     Active Substance: OXYCODONE HYDROCHLORIDE
     Indication: PAIN
     Dosage: 30 MILLIGRAM DAILY;
     Route: 048
  7. ALPRAZOLAM. [Concomitant]
     Active Substance: ALPRAZOLAM
     Indication: ANXIETY
     Dosage: .5 MILLIGRAM DAILY;
     Route: 048
  8. PACLITAXEL AUROBINDO [Concomitant]
     Indication: NEOPLASM
     Route: 042
     Dates: start: 20160511, end: 20160901
  9. MOGADON [Concomitant]
     Active Substance: NITRAZEPAM
     Dosage: 5 MILLIGRAM DAILY;
     Route: 048
  10. MONURIL [Concomitant]
     Active Substance: FOSFOMYCIN SODIUM
     Indication: PROPHYLAXIS URINARY TRACT INFECTION
     Route: 048
  11. DUPHALAC [Concomitant]
     Active Substance: LACTULOSE
     Indication: CONSTIPATION
     Dosage: 30 ML DAILY;
     Route: 048
  12. DEXAMETHASONE. [Concomitant]
     Active Substance: DEXAMETHASONE
     Indication: PROPHYLAXIS OF NAUSEA AND VOMITING
     Route: 048
     Dates: start: 20160511, end: 20160904
  13. EMEND [Concomitant]
     Active Substance: APREPITANT
     Indication: PROPHYLAXIS OF NAUSEA AND VOMITING
     Route: 048
     Dates: start: 20160511, end: 20160901
  14. PHENEGRAN [Concomitant]
     Indication: ANAPHYLAXIS PROPHYLAXIS
     Route: 030
     Dates: start: 20160511, end: 20160901
  15. DUROGESIC [Concomitant]
     Active Substance: FENTANYL
     Indication: PAIN
  16. PARACETAMOL [Concomitant]
     Active Substance: ACETAMINOPHEN
     Indication: PAIN
     Dosage: 3 GRAM DAILY;
     Route: 048

REACTIONS (2)
  - Blood pressure increased [Recovered/Resolved]
  - Urticaria [Recovered/Resolved]

NARRATIVE: CASE EVENT DATE: 20160901
